FAERS Safety Report 16561016 (Version 1)
Quarter: 2019Q3

REPORT INFORMATION
  Report Type: Spontaneous
  Country: US (occurrence: US)
  Receive Date: 20190711
  Receipt Date: 20190711
  Transmission Date: 20191004
  Serious: No
  Sender: FDA-Public Use
  Company Number: US-009507513-1906USA004329

PATIENT
  Age: 75 Year
  Sex: Male

DRUGS (1)
  1. PRINIVIL [Suspect]
     Active Substance: LISINOPRIL
     Indication: SCLERODERMA
     Dosage: UNK

REACTIONS (2)
  - Off label use [Unknown]
  - Hypotension [Unknown]
